FAERS Safety Report 20777142 (Version 1)
Quarter: 2022Q2

REPORT INFORMATION
  Report Type: Spontaneous
  Country: FR (occurrence: FR)
  Receive Date: 20220503
  Receipt Date: 20220503
  Transmission Date: 20220720
  Serious: Yes (Hospitalization, Other)
  Sender: FDA-Public Use
  Company Number: None

PATIENT
  Age: 67 Year
  Sex: Female
  Weight: 54.7 kg

DRUGS (13)
  1. HEPARIN SODIUM [Suspect]
     Active Substance: HEPARIN SODIUM
     Indication: Thrombosis prophylaxis
     Dosage: UNK
     Route: 041
     Dates: start: 20220201, end: 20220204
  2. HEPARIN SODIUM [Suspect]
     Active Substance: HEPARIN SODIUM
     Dosage: UNK
     Route: 041
     Dates: start: 20220208, end: 20220210
  3. LOVENOX [Suspect]
     Active Substance: ENOXAPARIN SODIUM
     Indication: Thrombosis prophylaxis
     Dosage: 0.4 ML, QD
     Route: 058
     Dates: start: 20220211, end: 20220309
  4. ELIQUIS [Concomitant]
     Active Substance: APIXABAN
     Indication: Haemoptysis
     Route: 065
  5. HYDROCHLOROTHIAZIDE\IRBESARTAN [Concomitant]
     Active Substance: HYDROCHLOROTHIAZIDE\IRBESARTAN
     Indication: Haemoptysis
     Route: 065
  6. LERCANIDIPINE [Concomitant]
     Active Substance: LERCANIDIPINE
     Route: 065
  7. URAPIDIL [Concomitant]
     Active Substance: URAPIDIL
     Indication: Haemoptysis
     Route: 065
  8. ATORVASTATIN [Concomitant]
     Active Substance: ATORVASTATIN
     Indication: Haemoptysis
     Route: 065
  9. KARDEGIC [Concomitant]
     Active Substance: ASPIRIN DL-LYSINE
     Indication: Haemoptysis
     Route: 065
  10. LYRICA [Concomitant]
     Active Substance: PREGABALIN
     Indication: Haemoptysis
     Route: 065
  11. INNOVAR [Concomitant]
     Active Substance: DROPERIDOL\FENTANYL CITRATE
     Indication: Haemoptysis
     Route: 065
  12. VENTOLIN [Concomitant]
     Active Substance: ALBUTEROL SULFATE
     Indication: Haemoptysis
     Route: 065
  13. PIPERACILLIN SODIUM\TAZOBACTAM SODIUM [Concomitant]
     Active Substance: PIPERACILLIN SODIUM\TAZOBACTAM SODIUM
     Indication: Antibiotic therapy
     Dosage: UNK
     Route: 065

REACTIONS (1)
  - Acute generalised exanthematous pustulosis [Recovering/Resolving]

NARRATIVE: CASE EVENT DATE: 20220205
